FAERS Safety Report 7944634-6 (Version None)
Quarter: 2011Q4

REPORT INFORMATION
  Report Type: 
  Country: None (occurrence: None)
  Receive Date: 20111122
  Receipt Date: 20110620
  Transmission Date: 20120403
  Serious: Yes (Other)
  Sender: FDA-Public Use
  Company Number: PHHY2011US22311

PATIENT
  Age: 28 Year
  Sex: Female
  Weight: 71.7 kg

DRUGS (2)
  1. GILENYA [Suspect]
     Indication: MULTIPLE SCLEROSIS
     Dosage: 0.5 MG, QD, ORAL
     Route: 048
     Dates: start: 20110317
  2. GILENYA [Suspect]
     Indication: MULTIPLE SCLEROSIS
     Dosage: 0.5 MG, QD, ORAL
     Route: 048
     Dates: start: 20110316

REACTIONS (5)
  - HEART RATE DECREASED [None]
  - HYPOAESTHESIA [None]
  - CD4 LYMPHOCYTES DECREASED [None]
  - INSOMNIA [None]
  - ATRIOVENTRICULAR BLOCK SECOND DEGREE [None]
